FAERS Safety Report 18113506 (Version 1)
Quarter: 2020Q3

REPORT INFORMATION
  Report Type: Spontaneous
  Country: US (occurrence: US)
  Receive Date: 20200805
  Receipt Date: 20200805
  Transmission Date: 20201103
  Serious: Yes (Other)
  Sender: FDA-Public Use
  Company Number: US-PFIZER INC-2020291362

PATIENT
  Age: 47 Year
  Sex: Female

DRUGS (20)
  1. LEVAQUIN [Concomitant]
     Active Substance: LEVOFLOXACIN
     Dosage: 500 MG, DAILY [500 MG TABLET 1 TABLET ORALLY EVERY 24 HOURS]
     Route: 048
  2. ONDANSETRON [Concomitant]
     Active Substance: ONDANSETRON
     Indication: NAUSEA
     Dosage: 8 MG, AS NEEDED [8 MG TABLET 1 TABLET(S) ORALLY EVERY 8 HOURS AS NEEDED]
     Route: 048
  3. OXALIPLATIN. [Suspect]
     Active Substance: OXALIPLATIN
     Indication: RECTAL CANCER METASTATIC
     Dosage: UNK
     Dates: end: 20181003
  4. FLUOROURACIL. [Concomitant]
     Active Substance: FLUOROURACIL
     Dosage: UNK
     Dates: start: 201911
  5. GRAPIPRANT. [Concomitant]
     Active Substance: GRAPIPRANT
  6. REGLAN [Concomitant]
     Active Substance: METOCLOPRAMIDE HYDROCHLORIDE
     Indication: VOMITING
  7. MOTRIN [Concomitant]
     Active Substance: IBUPROFEN
     Dosage: UNK
     Route: 048
  8. OXYCODONE [Concomitant]
     Active Substance: OXYCODONE
     Indication: PAIN
     Dosage: 10 MG, AS NEEDED [10 MG TABLET 1 TABLET ORALLY EVERY 4 TO 6 HOURS AS NEEDED]
     Route: 048
  9. OXYCONTIN [Concomitant]
     Active Substance: OXYCODONE HYDROCHLORIDE
     Dosage: 30 MG, 3X/DAY [THREE TIMES A DAY, THREE TABLETS EACH TIME]
     Route: 048
  10. FLUOROURACIL. [Concomitant]
     Active Substance: FLUOROURACIL
     Dosage: UNK
     Dates: end: 201811
  11. AVASTIN [Concomitant]
     Active Substance: BEVACIZUMAB
     Dosage: UNK
     Dates: start: 201911
  12. FOLIC ACID. [Concomitant]
     Active Substance: FOLIC ACID
     Dosage: UNK
     Dates: start: 201911
  13. OXALIPLATIN. [Suspect]
     Active Substance: OXALIPLATIN
     Dosage: UNK
     Dates: start: 201911
  14. OXALIPLATIN. [Suspect]
     Active Substance: OXALIPLATIN
     Dosage: UNK
     Dates: start: 20200311
  15. PROCHLORPERAZINE. [Concomitant]
     Active Substance: PROCHLORPERAZINE
     Indication: NAUSEA
     Dosage: 10 MG, AS NEEDED [10 MG TABLET 1 TABLET(S) ORALLY EVERY 6 HOURS AS NEEDED]
     Route: 048
  16. OXALIPLATIN. [Suspect]
     Active Substance: OXALIPLATIN
     Dosage: UNK
     Dates: start: 20181031
  17. LIDOCAINE\PRILOCAINE HYDROCHLORIDE [Concomitant]
     Active Substance: LIDOCAINE\PRILOCAINE HYDROCHLORIDE
     Dosage: UNK [1 TOPICAL APPLICATION TOPICALLY AS DIRECTED]
     Route: 061
  18. OXALIPLATIN. [Suspect]
     Active Substance: OXALIPLATIN
     Dosage: UNK [85 MG/M2] 12 CYCLES COMPLETED
     Dates: end: 201811
  19. FOLIC ACID. [Concomitant]
     Active Substance: FOLIC ACID
     Dosage: UNK
     Dates: end: 201811
  20. REGLAN [Concomitant]
     Active Substance: METOCLOPRAMIDE HYDROCHLORIDE
     Indication: NAUSEA
     Dosage: 10 MG, AS NEEDED [10 MG TABLET 1 TABLET ORALLY EVERY DAY AS NEEDED]
     Route: 048

REACTIONS (5)
  - Drug hypersensitivity [Unknown]
  - Jaundice cholestatic [Unknown]
  - Neoplasm progression [Unknown]
  - Neutropenia [Unknown]
  - Neoplasm recurrence [Unknown]

NARRATIVE: CASE EVENT DATE: 201810
